FAERS Safety Report 7974807-8 (Version None)
Quarter: 2011Q4

REPORT INFORMATION
  Report Type: 
  Country: None (occurrence: None)
  Receive Date: 20111213
  Receipt Date: 20110818
  Transmission Date: 20120403
  Serious: No
  Sender: FDA-Public Use
  Company Number: US-BAYER-2011-074874

PATIENT
  Age: 43 Year
  Sex: Female

DRUGS (1)
  1. AVELOX [Suspect]
     Indication: INFECTION
     Dosage: 400 MG, QD
     Route: 048
     Dates: start: 20110816, end: 20110816

REACTIONS (4)
  - DEHYDRATION [None]
  - ABDOMINAL PAIN UPPER [None]
  - DIARRHOEA [None]
  - ASTHENIA [None]
